FAERS Safety Report 25056848 (Version 4)
Quarter: 2025Q3

REPORT INFORMATION
  Report Type: Report from Study
  Country: CN (occurrence: CN)
  Receive Date: 20250310
  Receipt Date: 20250728
  Transmission Date: 20251020
  Serious: Yes (Hospitalization)
  Sender: ROCHE
  Company Number: CN-ROCHE-10000110219

PATIENT
  Age: 66 Year
  Sex: Male
  Weight: 84 kg

DRUGS (22)
  1. ALECTINIB [Suspect]
     Active Substance: ALECTINIB
     Indication: Lung cancer metastatic
     Dosage: ON 14-OCT-2024, MOST RECENT DOSE OF ALECTINIB WAS ADMINISTERED PRIOR TO AE/SAE?LAST DOSE OF ALECTINI
     Route: 048
     Dates: start: 20211022
  2. CELECOXIB [Concomitant]
     Active Substance: CELECOXIB
     Indication: Analgesic therapy
     Route: 048
     Dates: start: 20240304
  3. CELECOXIB [Concomitant]
     Active Substance: CELECOXIB
     Route: 048
     Dates: start: 20240304, end: 20240501
  4. CELECOXIB [Concomitant]
     Active Substance: CELECOXIB
     Route: 048
     Dates: start: 20241125, end: 20250103
  5. CELECOXIB [Concomitant]
     Active Substance: CELECOXIB
     Route: 048
     Dates: start: 20240303, end: 20240312
  6. NAPROXINE TABLETS [Concomitant]
     Indication: Analgesic therapy
     Route: 048
     Dates: start: 20240705, end: 20240715
  7. NAPROXINE TABLETS [Concomitant]
     Route: 048
     Dates: start: 20240625, end: 20240627
  8. NAPROXEN AND CODEINE PHOSPHATE TABLETS [Concomitant]
     Indication: Analgesic therapy
     Route: 048
     Dates: start: 20240301, end: 20240304
  9. PHLOROGLUCINOL INJECTION [Concomitant]
     Indication: Abdominal pain
     Route: 042
     Dates: start: 20240624, end: 20240624
  10. KETOROLAC TROMETHAMINE [Concomitant]
     Active Substance: KETOROLAC TROMETHAMINE
     Indication: Analgesic therapy
     Route: 042
     Dates: start: 20240624, end: 20240624
  11. DROTAVERINE TABLETS [Concomitant]
     Indication: Analgesic therapy
     Route: 048
     Dates: start: 20240625, end: 20240627
  12. FEBUXOSTAT [Concomitant]
     Active Substance: FEBUXOSTAT
     Indication: Hyperuricaemia
     Route: 048
     Dates: start: 202404
  13. AMLODIPINE [Concomitant]
     Active Substance: AMLODIPINE BESYLATE
     Indication: Hypertension
     Route: 048
     Dates: start: 2000
  14. GLUCOSAMINE HYDROCHLORIDE [Concomitant]
     Active Substance: GLUCOSAMINE HYDROCHLORIDE
     Indication: Analgesic therapy
     Route: 048
     Dates: start: 20241126, end: 20250103
  15. GLUCOSAMINE HYDROCHLORIDE [Concomitant]
     Active Substance: GLUCOSAMINE HYDROCHLORIDE
     Indication: Arthropathy
     Route: 048
     Dates: start: 20241015, end: 20241025
  16. ETORICOXIB [Concomitant]
     Active Substance: ETORICOXIB
     Indication: Arthropathy
     Route: 048
     Dates: start: 20241015, end: 20241025
  17. EPERISONE HYDROCHLORIDE [Concomitant]
     Active Substance: EPERISONE HYDROCHLORIDE
     Indication: Arthropathy
     Route: 048
     Dates: start: 20241016, end: 20241018
  18. LOXOPROFEN SODIUM CATAPLASMS [Concomitant]
     Indication: Analgesic therapy
     Dosage: MEDICATION DOSE: 1 OTHER
     Route: 061
     Dates: start: 20241018, end: 20241018
  19. DICLOFENAC DIETHYLAMINE [Concomitant]
     Active Substance: DICLOFENAC DIETHYLAMINE
     Indication: Analgesic therapy
     Route: 061
     Dates: start: 20241018, end: 20241018
  20. FLURBIPROFEN CATAPLASMS [Concomitant]
     Dosage: 1 PATCH, MEDICATION DOSE 1 OTHER
     Route: 061
     Dates: start: 20250305, end: 20250312
  21. AMINOPHYLLINE\CHLORPHENIRAMINE MALEATE\METHOXYPHENAMINE HYDROCHLORIDE\ [Concomitant]
     Active Substance: AMINOPHYLLINE\CHLORPHENIRAMINE MALEATE\METHOXYPHENAMINE HYDROCHLORIDE\NOSCAPINE
     Route: 048
     Dates: start: 20250703, end: 20250707
  22. AMBROXOL HYDROCHLORIDE [Concomitant]
     Active Substance: AMBROXOL HYDROCHLORIDE
     Route: 048
     Dates: start: 20250704, end: 20250707

REACTIONS (1)
  - Arthropathy [Not Recovered/Not Resolved]

NARRATIVE: CASE EVENT DATE: 20240401
